FAERS Safety Report 5201290-8 (Version None)
Quarter: 2007Q1

REPORT INFORMATION
  Report Type: 
  Country: None (occurrence: None)
  Receive Date: 20070104
  Receipt Date: 20061227
  Transmission Date: 20070707
  Serious: Yes (Hospitalization)
  Sender: FDA-Public Use
  Company Number: 163-21880-06120321

PATIENT
  Age: 60 Year
  Sex: Male

DRUGS (4)
  1. REVLIMID [Suspect]
     Indication: MULTIPLE MYELOMA
     Dosage: 25  MG, 1 IN 1 D, ORAL
     Route: 048
     Dates: start: 20060725
  2. ENTEX LA (ENDAL) [Concomitant]
  3. FLOMAX [Concomitant]
  4. PREVACID [Concomitant]

REACTIONS (3)
  - ATRIOVENTRICULAR BLOCK COMPLETE [None]
  - BRADYCARDIA [None]
  - DEEP VEIN THROMBOSIS [None]
